FAERS Safety Report 13638938 (Version 2)
Quarter: 2017Q2

REPORT INFORMATION
  Report Type: Spontaneous
  Country: IR (occurrence: IR)
  Receive Date: 20170609
  Receipt Date: 20170612
  Transmission Date: 20170830
  Serious: Yes (Life-Threatening)
  Sender: FDA-Public Use
  Company Number: IR-ELI_LILLY_AND_COMPANY-IR201706003493

PATIENT
  Age: 63 Year
  Sex: Male

DRUGS (4)
  1. ERBITUX [Suspect]
     Active Substance: CETUXIMAB
     Indication: COLORECTAL CANCER
     Dosage: 200 MG/ML, 2/M
     Route: 042
     Dates: start: 20170503
  2. XELODA [Concomitant]
     Active Substance: CAPECITABINE
     Indication: COLORECTAL CANCER
     Dosage: UNK UNK, UNKNOWN
     Route: 065
  3. ERBITUX [Suspect]
     Active Substance: CETUXIMAB
     Dosage: 100 MG/ML, 2/M
     Route: 042
  4. ERBITUX [Suspect]
     Active Substance: CETUXIMAB
     Dosage: 200 MG/ML, 2/M
     Route: 042
     Dates: start: 20170531

REACTIONS (5)
  - Loss of consciousness [Recovered/Resolved]
  - Off label use [Unknown]
  - Hypotension [Recovered/Resolved]
  - Dyspnoea [Recovered/Resolved]
  - Burning sensation [Recovered/Resolved]

NARRATIVE: CASE EVENT DATE: 20170531
